FAERS Safety Report 13397061 (Version 2)
Quarter: 2017Q2

REPORT INFORMATION
  Report Type: Spontaneous
  Country: US (occurrence: US)
  Receive Date: 20170403
  Receipt Date: 20170425
  Transmission Date: 20170830
  Serious: Yes (Other)
  Sender: FDA-Public Use
  Company Number: US-009507513-1703USA013252

PATIENT
  Age: 32 Year
  Sex: Female

DRUGS (1)
  1. NEXPLANON [Suspect]
     Active Substance: ETONOGESTREL
     Indication: CONTRACEPTION
     Dosage: 1 DF (68 MG), ONCE
     Route: 059
     Dates: start: 20161228

REACTIONS (4)
  - Pyrexia [Unknown]
  - Neutrophil count decreased [Unknown]
  - Pain [Unknown]
  - Klebsiella infection [Unknown]
